FAERS Safety Report 24411507 (Version 3)
Quarter: 2024Q4

REPORT INFORMATION
  Report Type: Spontaneous
  Country: US (occurrence: US)
  Receive Date: 20241008
  Receipt Date: 20241119
  Transmission Date: 20250114
  Serious: Yes (Hospitalization, Other)
  Sender: PFIZER
  Company Number: US-PFIZER INC-202400271169

PATIENT
  Age: 72 Year
  Sex: Female
  Weight: 88.45 kg

DRUGS (5)
  1. IBRANCE [Suspect]
     Active Substance: PALBOCICLIB
     Indication: Breast cancer metastatic
     Dosage: 125 MILLIGRAMS, BY MOUTH AND ONE TIME A DAY
     Route: 048
  2. ANASTROZOLE [Concomitant]
     Active Substance: ANASTROZOLE
     Indication: Neoplasm malignant
     Dosage: 1 MG
  3. LOSARTAN [Concomitant]
     Active Substance: LOSARTAN
     Indication: Hypertension
     Dosage: 50 MG
  4. LORATADINE [Concomitant]
     Active Substance: LORATADINE
     Indication: Hypersensitivity
     Dosage: 10 MG
  5. VITAMIN D NOS [Concomitant]
     Active Substance: CHOLECALCIFEROL\ERGOCALCIFEROL
     Dosage: 50 UG

REACTIONS (12)
  - Thrombosis [Unknown]
  - Dyspnoea [Unknown]
  - Wheezing [Unknown]
  - Cold sweat [Unknown]
  - Nasopharyngitis [Unknown]
  - Presyncope [Unknown]
  - COVID-19 [Unknown]
  - Herpes zoster [Unknown]
  - Mastitis [Unknown]
  - Memory impairment [Unknown]
  - Hypersensitivity [Unknown]
  - Disease recurrence [Unknown]
